FAERS Safety Report 7465432 (Version 8)
Quarter: 2015Q1

REPORT INFORMATION
  Report Type: Spontaneous
  Country: US (occurrence: US)
  Receive Date: 20100712
  Receipt Date: 20150210
  Transmission Date: 20150721
  Serious: Yes (Hospitalization, Other)
  Sender: FDA-Public Use
  Company Number: US-BAYER-201027315NA

PATIENT
  Age: 45 Year
  Sex: Female
  Weight: 160 kg

DRUGS (13)
  1. TUMS [CALCIUM CARBONATE,MAGNESIUM CARBONATE] [Concomitant]
     Dosage: UNK
     Route: 048
     Dates: start: 20140130, end: 20140203
  2. YAZ [Suspect]
     Active Substance: DROSPIRENONE\ETHINYL ESTRADIOL
  3. OCELLA [Suspect]
     Active Substance: DROSPIRENONE\ETHINYL ESTRADIOL
     Dosage: MANY YEARS PRIOR TO 10-DEC-2008
     Route: 048
     Dates: start: 2008
  4. GLUCOSAMINE [Concomitant]
     Active Substance: GLUCOSAMINE
     Dosage: 750 MG, UNK
     Route: 048
     Dates: start: 20140130, end: 20140203
  5. YASMIN [Suspect]
     Active Substance: DROSPIRENONE\ETHINYL ESTRADIOL
     Indication: PRODUCT USED FOR UNKNOWN INDICATION
     Dosage: UNK
     Dates: start: 20070124, end: 20080624
  6. TRIAMCINOLONE [Concomitant]
     Active Substance: TRIAMCINOLONE
     Dosage: 55 ?G, UNK
     Route: 061
     Dates: start: 20140121
  7. FOLIC ACID. [Concomitant]
     Active Substance: FOLIC ACID
     Dosage: 1 MG, UNK
     Route: 048
     Dates: start: 20131217
  8. SIMVASTATIN. [Concomitant]
     Active Substance: SIMVASTATIN
     Dosage: UNK
     Route: 048
     Dates: start: 20140130, end: 20140204
  9. KEPPRA [Concomitant]
     Active Substance: LEVETIRACETAM
  10. KRILL OIL [Concomitant]
     Active Substance: DIETARY SUPPLEMENT
     Dosage: UNK
     Route: 048
     Dates: start: 20140130
  11. VITAMIN D [Concomitant]
     Active Substance: CHOLECALCIFEROL
     Dosage: UNK
     Route: 048
     Dates: start: 20140130, end: 20140203
  12. EXCEDRIN [Concomitant]
     Active Substance: ACETAMINOPHEN\ASPIRIN\CAFFEINE
     Indication: PAIN IN EXTREMITY
     Dosage: UNK
     Route: 048
     Dates: start: 20081210
  13. YASMIN [Suspect]
     Active Substance: DROSPIRENONE\ETHINYL ESTRADIOL
     Indication: PRODUCT USED FOR UNKNOWN INDICATION
     Dosage: MANY YEARS PRIOR TO 10-DEC-2008
     Route: 048
     Dates: start: 2003, end: 2008

REACTIONS (13)
  - Headache [Unknown]
  - Head injury [None]
  - Syncope [Unknown]
  - Fear [None]
  - Stress [None]
  - Pain in extremity [Recovered/Resolved]
  - Seizure [Unknown]
  - Pulmonary embolism [Unknown]
  - Pain [Unknown]
  - Cholecystitis chronic [None]
  - Anxiety [None]
  - Biliary colic [None]
  - Deep vein thrombosis [Recovered/Resolved]

NARRATIVE: CASE EVENT DATE: 20081210
